FAERS Safety Report 20119201 (Version 1)
Quarter: 2021Q4

REPORT INFORMATION
  Report Type: Report from Study
  Country: US (occurrence: US)
  Receive Date: 20211126
  Receipt Date: 20211126
  Transmission Date: 20220303
  Serious: Yes (Other)
  Sender: FDA-Public Use
  Company Number: US-MYLANLABS-2021M1084654

PATIENT
  Age: 81 Year
  Sex: Female

DRUGS (1)
  1. VENLAFAXINE HYDROCHLORIDE [Suspect]
     Active Substance: VENLAFAXINE HYDROCHLORIDE
     Indication: Product used for unknown indication
     Dosage: UNK

REACTIONS (10)
  - Hypothermia [Unknown]
  - Suicidal ideation [Unknown]
  - Crying [Unknown]
  - Central nervous system lesion [Unknown]
  - Mental disorder [Unknown]
  - Hypoacusis [Unknown]
  - Affect lability [Unknown]
  - Hyperhidrosis [Unknown]
  - Malaise [Unknown]
  - Drug ineffective [Unknown]
